FAERS Safety Report 14336715 (Version 7)
Quarter: 2018Q1

REPORT INFORMATION
  Report Type: Report from Study
  Country: CA (occurrence: CA)
  Receive Date: 20171229
  Receipt Date: 20180206
  Transmission Date: 20180509
  Serious: Yes (Other)
  Sender: FDA-Public Use
  Company Number: CA-GLAXOSMITHKLINE-CA2017GSK200918

PATIENT
  Age: 49 Year
  Sex: Female

DRUGS (2)
  1. MEPOLIZUMAB [Suspect]
     Active Substance: MEPOLIZUMAB
     Indication: ASTHMA
     Dosage: 100 MG, Z,MONTHLY
     Route: 042
     Dates: start: 20171222
  2. VENTOLIN [Suspect]
     Active Substance: ALBUTEROL SULFATE
     Indication: PRODUCT USED FOR UNKNOWN INDICATION
     Dosage: UNK

REACTIONS (21)
  - Hot flush [Unknown]
  - Malaise [Unknown]
  - Ill-defined disorder [Unknown]
  - Syncope [Unknown]
  - Catatonia [Unknown]
  - Vision blurred [Unknown]
  - Asthenia [Unknown]
  - Heart rate irregular [Not Recovered/Not Resolved]
  - Headache [Not Recovered/Not Resolved]
  - Dizziness [Unknown]
  - Vomiting [Unknown]
  - Sleep disorder [Unknown]
  - Coma [Unknown]
  - Blood pressure fluctuation [Not Recovered/Not Resolved]
  - Blood pressure decreased [Unknown]
  - Chest pain [Not Recovered/Not Resolved]
  - Loss of consciousness [Unknown]
  - Nausea [Not Recovered/Not Resolved]
  - Drug hypersensitivity [Unknown]
  - Diarrhoea [Not Recovered/Not Resolved]
  - Fatigue [Unknown]

NARRATIVE: CASE EVENT DATE: 20171222
